FAERS Safety Report 8257298-1 (Version None)
Quarter: 2012Q1

REPORT INFORMATION
  Report Type: 
  Country: None (occurrence: None)
  Receive Date: 20120330
  Receipt Date: 20120315
  Transmission Date: 20120608
  Serious: Yes (Life-Threatening)
  Sender: FDA-Public Use
  Company Number: B0672919A

PATIENT
  Sex: Female

DRUGS (6)
  1. CARBOPLATIN [Suspect]
     Indication: ENDOMETRIAL CANCER
     Dosage: SINGLE DOSE /INTRAVENOUS
     Route: 042
     Dates: start: 20100809, end: 20100809
  2. RANITIDINE HYDROCHLORIDE [Suspect]
     Indication: PREMEDICATION
     Dosage: 50 MG /SINGLE DOSE / INTRAVENOUS
     Route: 042
     Dates: start: 20100809, end: 20100809
  3. DEXCHLORPHENIRAM MALEATE [Concomitant]
  4. PACLITAXEL [Suspect]
     Indication: ENDOMETRIAL CANCER
     Dosage: 325 MG/ SINGLE DOSE / INTRAVENOUS
     Route: 042
     Dates: start: 20100809, end: 20100809
  5. METHYLPREDNISOLONE [Concomitant]
  6. ONDANSETRON HYDROCHLORIDE [Suspect]
     Indication: PREMEDICATION
     Dosage: 8 MG /SINGLE DOSE / INTRAVENOUS
     Route: 042
     Dates: start: 20100809, end: 20100809

REACTIONS (2)
  - CARDIO-RESPIRATORY ARREST [None]
  - ANAPHYLACTIC SHOCK [None]
